FAERS Safety Report 16312653 (Version 1)
Quarter: 2019Q2

REPORT INFORMATION
  Report Type: Spontaneous
  Country: US (occurrence: US)
  Receive Date: 20190515
  Receipt Date: 20190515
  Transmission Date: 20190711
  Serious: No
  Sender: FDA-Public Use
  Company Number: US-GLAXOSMITHKLINE-US2019084060

PATIENT
  Sex: Female

DRUGS (2)
  1. MOTRIN [Concomitant]
     Active Substance: IBUPROFEN
     Indication: PRODUCT USED FOR UNKNOWN INDICATION
     Dosage: UNK
     Route: 065
  2. NUCALA [Suspect]
     Active Substance: MEPOLIZUMAB
     Indication: ASTHMA
     Dosage: UNK
     Route: 042

REACTIONS (14)
  - Headache [Unknown]
  - Dizziness [Unknown]
  - Wheezing [Unknown]
  - Pain in extremity [Unknown]
  - Asthenia [Unknown]
  - Groin pain [Unknown]
  - Feeling hot [Unknown]
  - Back pain [Unknown]
  - Decreased appetite [Unknown]
  - Insomnia [Unknown]
  - Fatigue [Unknown]
  - Pruritus generalised [Unknown]
  - Polyuria [Unknown]
  - Gait disturbance [Unknown]
